FAERS Safety Report 5823338-X (Version None)
Quarter: 2008Q3

REPORT INFORMATION
  Report Type: 
  Country: None (occurrence: None)
  Receive Date: 20080725
  Receipt Date: 20080711
  Transmission Date: 20090109
  Serious: Yes (Hospitalization, Other)
  Sender: FDA-Public Use
  Company Number: US-AMGEN-US275775

PATIENT
  Sex: Male
  Weight: 139.8 kg

DRUGS (21)
  1. EPOGEN [Suspect]
     Indication: DIALYSIS
     Route: 058
  2. IRON [Concomitant]
     Dates: start: 20070501
  3. ZIAGEN [Concomitant]
     Route: 048
  4. LANTUS [Concomitant]
     Route: 058
  5. METOPROLOL TARTRATE [Concomitant]
     Route: 048
  6. ASPIRIN [Concomitant]
     Route: 048
  7. RESTORIL [Concomitant]
     Route: 048
  8. EPIVIR [Concomitant]
     Route: 048
  9. METOLAZONE [Concomitant]
     Route: 048
  10. GLIPIZIDE [Concomitant]
     Route: 048
  11. LIPITOR [Concomitant]
     Route: 048
  12. ZETIA [Concomitant]
     Route: 048
  13. NORVASC [Concomitant]
     Route: 048
  14. LASIX [Concomitant]
     Route: 048
  15. DIOVAN [Concomitant]
     Route: 048
  16. KALETRA [Concomitant]
     Route: 048
  17. PHOSLO [Concomitant]
     Route: 048
     Dates: start: 20080129
  18. NEPHRO-VITE [Concomitant]
     Route: 048
     Dates: start: 20080129
  19. HECTORAL [Concomitant]
     Route: 048
     Dates: start: 20080207, end: 20080501
  20. DOXYCYCLINE HCL [Concomitant]
  21. TERAZOSIN HCL [Concomitant]

REACTIONS (5)
  - ANAEMIA [None]
  - GASTRITIS EROSIVE [None]
  - ODYNOPHAGIA [None]
  - OESOPHAGEAL CANDIDIASIS [None]
  - STAPHYLOCOCCAL INFECTION [None]
